FAERS Safety Report 6309589-9 (Version None)
Quarter: 2009Q3

REPORT INFORMATION
  Report Type: 
  Country: None (occurrence: None)
  Receive Date: 20090814
  Receipt Date: 20090805
  Transmission Date: 20100115
  Serious: Yes (Disabling)
  Sender: FDA-Public Use
  Company Number: PHHY2009MT33504

PATIENT
  Age: 61 Year
  Sex: Female

DRUGS (1)
  1. LESCOL XL [Suspect]
     Indication: HYPERCHOLESTEROLAEMIA
     Dosage: 80MG PER DAY
     Route: 048
     Dates: start: 20090615, end: 20090620

REACTIONS (2)
  - MUSCULAR WEAKNESS [None]
  - WALKING AID USER [None]
